FAERS Safety Report 7654537-2 (Version None)
Quarter: 2011Q3

REPORT INFORMATION
  Report Type: 
  Country: None (occurrence: None)
  Receive Date: 20110803
  Receipt Date: 20110725
  Transmission Date: 20111222
  Serious: Yes (Hospitalization)
  Sender: FDA-Public Use
  Company Number: US-MERCK-1106USA00689

PATIENT
  Age: 78 Year
  Sex: Female
  Weight: 82 kg

DRUGS (12)
  1. ZOCOR [Suspect]
     Indication: BLOOD CHOLESTEROL
     Route: 048
     Dates: start: 20110504, end: 20110508
  2. VALSARTAN [Concomitant]
     Route: 065
  3. ASPIRIN [Concomitant]
     Route: 048
  4. RAMIPRIL [Concomitant]
     Route: 065
  5. ZOCOR [Suspect]
     Indication: HYPERLIPIDAEMIA
     Route: 048
     Dates: start: 20110504, end: 20110508
  6. SINGULAIR [Concomitant]
     Route: 065
  7. LIPITOR [Concomitant]
     Route: 065
  8. AMBIEN [Concomitant]
     Route: 065
  9. ACTOS [Concomitant]
     Route: 065
  10. NEXIUM [Concomitant]
     Route: 065
  11. COLACE [Concomitant]
     Route: 065
  12. FEXOFENADINE HYDROCHLORIDE [Concomitant]
     Route: 065

REACTIONS (7)
  - MUSCULOSKELETAL PAIN [None]
  - RENAL CYST [None]
  - THYROID NEOPLASM [None]
  - BACK PAIN [None]
  - CHEST PAIN [None]
  - FIBRIN D DIMER INCREASED [None]
  - MUSCLE SPASMS [None]
